FAERS Safety Report 9364194 (Version 1)
Quarter: 2013Q2

REPORT INFORMATION
  Report Type: Report from Study
  Country: FR (occurrence: FR)
  Receive Date: 20130624
  Receipt Date: 20130624
  Transmission Date: 20140414
  Serious: Yes (Hospitalization)
  Sender: FDA-Public Use
  Company Number: FR-BAYER-2013-073383

PATIENT
  Age: 64 Year
  Sex: Male

DRUGS (3)
  1. SORAFENIB (RAF KINASE INHIBITOR) [Suspect]
     Indication: RENAL CELL CARCINOMA
     Dosage: 200 MG, QD (200MG/D)
     Route: 048
     Dates: start: 20130218, end: 20130417
  2. ATENOLOL [Concomitant]
     Dosage: DAILY DOSE: 50MG
     Route: 048
  3. INEXIUM [Concomitant]
     Dosage: DAILY DOSE: 20MG

REACTIONS (1)
  - Transient ischaemic attack [Recovered/Resolved]
